FAERS Safety Report 4795477-6 (Version None)
Quarter: 2005Q3

REPORT INFORMATION
  Report Type: 
  Country: None (occurrence: None)
  Receive Date: 20050916
  Receipt Date: 20050601
  Transmission Date: 20060218
  Serious: Yes (Other)
  Sender: FDA-Public Use
  Company Number: US-JNJFOC-20050601328

PATIENT
  Age: 34 Year
  Sex: Female

DRUGS (6)
  1. TOPAMAX [Suspect]
     Indication: MIGRAINE PROPHYLAXIS
     Dosage: 25 MG, 1 IN 1 DAY; ORAL, 100 MG, IN 1 DAY; ORAL, 100 MG, 2 IN 1 DAY; ORAL
     Route: 048
     Dates: start: 20031201
  2. TOPAMAX [Suspect]
     Indication: MIGRAINE PROPHYLAXIS
     Dosage: 25 MG, 1 IN 1 DAY; ORAL, 100 MG, IN 1 DAY; ORAL, 100 MG, 2 IN 1 DAY; ORAL
     Route: 048
     Dates: start: 20041101
  3. MAGNESIUM (TABLETS) [Concomitant]
  4. FIORICET (TABLETS) AXOTAL (OLD FORM)) TABLETS [Concomitant]
  5. ANTIHYPERTENSIVE (ANTIHYPERTENSIVES) [Concomitant]
  6. VITAMIN B 100 (VITAMIN B) TABLETS [Concomitant]

REACTIONS (5)
  - CONCUSSION [None]
  - DISTURBANCE IN ATTENTION [None]
  - LOSS OF CONSCIOUSNESS [None]
  - PARAESTHESIA [None]
  - WEIGHT DECREASED [None]
